FAERS Safety Report 8371240-4 (Version None)
Quarter: 2012Q2

REPORT INFORMATION
  Report Type: 
  Country: None (occurrence: None)
  Receive Date: 20120518
  Receipt Date: 20120509
  Transmission Date: 20120825
  Serious: Yes (Other)
  Sender: FDA-Public Use
  Company Number: JP-VERTEX PHARMACEUTICALS INC.-AE-2012-006990

PATIENT
  Age: 77 Year
  Sex: Female

DRUGS (12)
  1. TELAVIC (TELAPREVIR) [Suspect]
     Indication: HEPATITIS C
     Route: 048
     Dates: start: 20120424, end: 20120427
  2. MAGMITT [Concomitant]
     Route: 048
  3. NEXIUM [Concomitant]
     Route: 048
     Dates: start: 20120424
  4. VOLTAREN [Concomitant]
     Route: 054
     Dates: start: 20120424
  5. URSO 250 [Concomitant]
     Route: 048
  6. TALION [Concomitant]
     Route: 048
     Dates: start: 20120424
  7. PROMACTA [Concomitant]
     Route: 048
  8. RIBAVIRIN [Concomitant]
     Route: 048
     Dates: start: 20120424, end: 20120427
  9. DEPAS [Concomitant]
     Route: 048
  10. PEGINTERFERON ALFA-2B [Concomitant]
     Route: 051
     Dates: start: 20120424, end: 20120427
  11. PORTOLAC [Concomitant]
     Route: 048
  12. CONIEL [Concomitant]
     Route: 048

REACTIONS (1)
  - RENAL IMPAIRMENT [None]
